FAERS Safety Report 14418255 (Version 1)
Quarter: 2018Q1

REPORT INFORMATION
  Report Type: Spontaneous
  Country: US (occurrence: US)
  Receive Date: 20180122
  Receipt Date: 20180122
  Transmission Date: 20180509
  Serious: No
  Sender: FDA-Public Use
  Company Number: US-INTERCEPT-PMOCA2017001198

PATIENT

DRUGS (4)
  1. CIPRO [Concomitant]
     Active Substance: CIPROFLOXACIN HYDROCHLORIDE
  2. OCALIVA [Suspect]
     Active Substance: OBETICHOLIC ACID
     Dosage: 10 MG, QD
  3. BENADRYL [Concomitant]
     Active Substance: DIPHENHYDRAMINE HYDROCHLORIDE
  4. OCALIVA [Suspect]
     Active Substance: OBETICHOLIC ACID
     Indication: PRIMARY BILIARY CHOLANGITIS
     Dosage: 5 MG, QD
     Dates: start: 201701

REACTIONS (6)
  - Epigastric discomfort [Unknown]
  - Liver function test increased [Unknown]
  - Fatigue [Not Recovered/Not Resolved]
  - Blood cholesterol increased [Unknown]
  - Blood bilirubin increased [Unknown]
  - Pruritus [Unknown]

NARRATIVE: CASE EVENT DATE: 201707
